FAERS Safety Report 7601403-4 (Version None)
Quarter: 2011Q3

REPORT INFORMATION
  Report Type: 
  Country: None (occurrence: None)
  Receive Date: 20110711
  Receipt Date: 20110628
  Transmission Date: 20111222
  Serious: Yes (Hospitalization)
  Sender: FDA-Public Use
  Company Number: US-MERCK-1107USA00108

PATIENT
  Age: 27 Year
  Sex: Male

DRUGS (5)
  1. DECADRON [Suspect]
     Indication: PROPHYLAXIS
     Route: 048
     Dates: start: 20090401
  2. NIFEDIPINE [Concomitant]
     Indication: PROPHYLAXIS
     Route: 065
     Dates: start: 20090401
  3. DECADRON [Suspect]
     Route: 048
  4. ACETAZOLAMIDE [Concomitant]
     Indication: PROPHYLAXIS
     Route: 065
     Dates: start: 20090401
  5. OMEPRAZOLE [Concomitant]
     Route: 065

REACTIONS (3)
  - ADVERSE EVENT [None]
  - STEROID WITHDRAWAL SYNDROME [None]
  - OSTEONECROSIS [None]
